FAERS Safety Report 9934063 (Version 1)
Quarter: 2014Q1

REPORT INFORMATION
  Report Type: Spontaneous
  Country: US (occurrence: US)
  Receive Date: 20140228
  Receipt Date: 20140228
  Transmission Date: 20141002
  Serious: No
  Sender: FDA-Public Use
  Company Number: US-MYLANLABS-2013S1023043

PATIENT
  Age: 51 Year
  Sex: Male
  Weight: 127.01 kg

DRUGS (1)
  1. METFORMIN HYDROCHLORIDE TABLETS USP [Suspect]
     Indication: INSULIN-REQUIRING TYPE 2 DIABETES MELLITUS
     Route: 048
     Dates: start: 201210

REACTIONS (4)
  - Drug ineffective [Not Recovered/Not Resolved]
  - Blood glucose increased [Not Recovered/Not Resolved]
  - Malaise [Not Recovered/Not Resolved]
  - Tinnitus [Not Recovered/Not Resolved]
